FAERS Safety Report 12697123 (Version 1)
Quarter: 2016Q3

REPORT INFORMATION
  Report Type: Report from Study
  Country: US (occurrence: US)
  Receive Date: 20160830
  Receipt Date: 20160830
  Transmission Date: 20161109
  Serious: Yes (Hospitalization)
  Sender: FDA-Public Use
  Company Number: US-ROCHE-1820580

PATIENT
  Age: 59 Year
  Sex: Female
  Weight: 73 kg

DRUGS (1)
  1. TRASTUZUMAB EMTANSINE [Suspect]
     Active Substance: ADO-TRASTUZUMAB EMTANSINE
     Indication: HER-2 POSITIVE BREAST CANCER
     Dosage: 3.6 MG/KG
     Route: 042
     Dates: start: 20160729

REACTIONS (4)
  - Dysuria [Unknown]
  - Chest pain [Unknown]
  - Left ventricular hypertrophy [Unknown]
  - Haematuria [Unknown]

NARRATIVE: CASE EVENT DATE: 20160820
